FAERS Safety Report 10497582 (Version 8)
Quarter: 2015Q3

REPORT INFORMATION
  Report Type: Report from Study
  Country: IN (occurrence: IN)
  Receive Date: 20141006
  Receipt Date: 20150918
  Transmission Date: 20151125
  Serious: Yes (Hospitalization)
  Sender: FDA-Public Use
  Company Number: IN-B.I. PHARMACEUTICALS,INC./RIDGEFIELD-2014-BI-47188BI

PATIENT
  Age: 35 Year
  Sex: Male
  Weight: 54.9 kg

DRUGS (8)
  1. PRACTIN [Concomitant]
     Indication: APPETITE DISORDER
     Dosage: 8 MG
     Route: 050
     Dates: start: 20140307, end: 20140930
  2. AMITRYPTELINE [Concomitant]
     Indication: ANTIDEPRESSANT THERAPY
     Dosage: 20 MG
     Route: 050
     Dates: start: 20140307
  3. DOMPERIDONE [Concomitant]
     Active Substance: DOMPERIDONE
     Indication: PROPHYLAXIS OF NAUSEA AND VOMITING
     Dosage: 10 MG
     Route: 050
     Dates: start: 20140307
  4. PANTOPRAZOLE [Concomitant]
     Active Substance: PANTOPRAZOLE SODIUM
     Indication: PROPHYLAXIS
     Dosage: 20 MG
     Route: 050
     Dates: start: 20140307
  5. CYPROHEPTIDINE [Concomitant]
     Indication: PROPHYLAXIS
     Dosage: 8 MG
     Route: 050
     Dates: start: 20140307, end: 20140930
  6. PRACTIN [Concomitant]
     Dosage: 4 MG
     Route: 050
     Dates: start: 20141001
  7. BIBW 2992 [Suspect]
     Active Substance: AFATINIB
     Indication: SQUAMOUS CELL CARCINOMA OF HEAD AND NECK
     Dosage: 40 MG
     Route: 050
     Dates: start: 20140826
  8. PANTOPRAZOLE [Concomitant]
     Active Substance: PANTOPRAZOLE SODIUM
     Dosage: 40 MG
     Route: 050
     Dates: start: 20140628, end: 20141013

REACTIONS (1)
  - Anaemia [Recovered/Resolved]

NARRATIVE: CASE EVENT DATE: 20140929
